FAERS Safety Report 9422530 (Version 1)
Quarter: 2013Q3

REPORT INFORMATION
  Report Type: Spontaneous
  Country: US (occurrence: None)
  Receive Date: 20130725
  Receipt Date: 20130725
  Transmission Date: 20140515
  Serious: Yes (Hospitalization)
  Sender: FDA-Public Use
  Company Number: None

PATIENT
  Age: 69 Year
  Sex: Male

DRUGS (8)
  1. AMOXICILLIN W/CLAVULANIC ACID [Suspect]
     Dates: start: 20120723, end: 20120731
  2. ACETYLSALICYLIC ACID [Concomitant]
  3. ENALAPRIL [Concomitant]
  4. GLIPIZIDE [Concomitant]
  5. HYDROCHLOROTHIAZIDE [Concomitant]
  6. ISOSORBIDE MONONITRATE [Concomitant]
  7. METFORMIN [Concomitant]
  8. SIMVASTATIN [Concomitant]

REACTIONS (5)
  - Jaundice [None]
  - Fatigue [None]
  - Aspartate aminotransferase increased [None]
  - Alanine aminotransferase increased [None]
  - Blood alkaline phosphatase increased [None]
